FAERS Safety Report 24709242 (Version 2)
Quarter: 2025Q1

REPORT INFORMATION
  Report Type: Report from Study
  Country: US (occurrence: US)
  Receive Date: 20241208
  Receipt Date: 20250103
  Transmission Date: 20250409
  Serious: Yes (Other)
  Sender: ALEXION PHARMACEUTICALS
  Company Number: US-AstraZeneca-CH-00759789A

PATIENT
  Age: 55 Year

DRUGS (8)
  1. IMFINZI [Suspect]
     Active Substance: DURVALUMAB
     Indication: Hepatocellular carcinoma
     Route: 065
  2. IMFINZI [Suspect]
     Active Substance: DURVALUMAB
     Route: 065
  3. IMFINZI [Suspect]
     Active Substance: DURVALUMAB
     Route: 065
  4. IMFINZI [Suspect]
     Active Substance: DURVALUMAB
     Route: 065
  5. IMJUDO [Suspect]
     Active Substance: TREMELIMUMAB\TREMELIMUMAB-ACTL
     Indication: Hepatocellular carcinoma
     Route: 065
  6. IMJUDO [Suspect]
     Active Substance: TREMELIMUMAB\TREMELIMUMAB-ACTL
     Route: 065
  7. IMJUDO [Suspect]
     Active Substance: TREMELIMUMAB\TREMELIMUMAB-ACTL
     Route: 065
  8. IMJUDO [Suspect]
     Active Substance: TREMELIMUMAB\TREMELIMUMAB-ACTL
     Route: 065

REACTIONS (1)
  - Malignant neoplasm progression [Unknown]
